FAERS Safety Report 9257336 (Version 2)
Quarter: 2013Q3

REPORT INFORMATION
  Report Type: Spontaneous
  Country: US (occurrence: US)
  Receive Date: 20130426
  Receipt Date: 20130910
  Transmission Date: 20140515
  Serious: Yes (Hospitalization, Other)
  Sender: FDA-Public Use
  Company Number: US-ASTRAZENECA-2013SE27665

PATIENT
  Age: 606 Month
  Sex: Male

DRUGS (8)
  1. NEXIUM [Suspect]
     Indication: GASTROOESOPHAGEAL REFLUX DISEASE
     Dosage: ONE TIME DAILY
     Route: 048
  2. NEXIUM [Suspect]
     Indication: DYSPEPSIA
     Dosage: ONE TIME DAILY
     Route: 048
  3. NEXIUM [Suspect]
     Indication: GASTROOESOPHAGEAL REFLUX DISEASE
     Route: 048
     Dates: start: 200903
  4. NEXIUM [Suspect]
     Indication: DYSPEPSIA
     Route: 048
     Dates: start: 200903
  5. PROTONIX [Suspect]
     Indication: DYSPEPSIA
     Route: 065
  6. MULTIVITAMIN [Concomitant]
  7. PREVACID [Concomitant]
  8. NAMENDA [Concomitant]

REACTIONS (10)
  - Convulsion [Unknown]
  - Hip fracture [Unknown]
  - Cerebrovascular accident [Unknown]
  - Suicidal ideation [Unknown]
  - Depression [Unknown]
  - Osteoporosis [Unknown]
  - Bone disorder [Unknown]
  - Bipolar disorder [Unknown]
  - Bipolar I disorder [Unknown]
  - Arthritis [Unknown]
